FAERS Safety Report 13068691 (Version 1)
Quarter: 2016Q4

REPORT INFORMATION
  Report Type: Spontaneous
  Country: GB (occurrence: GB)
  Receive Date: 20161228
  Receipt Date: 20161228
  Transmission Date: 20170207
  Serious: Yes (Other)
  Sender: FDA-Public Use
  Company Number: GB-PFIZER INC-2016595888

PATIENT
  Age: 68 Year
  Sex: Male

DRUGS (1)
  1. SUTENT [Suspect]
     Active Substance: SUNITINIB MALATE
     Dosage: 12.5 MG, UNK

REACTIONS (5)
  - Rectal abscess [Unknown]
  - Insomnia [Unknown]
  - Diarrhoea [Unknown]
  - Oral infection [Unknown]
  - Constipation [Unknown]
